FAERS Safety Report 7730187-4 (Version None)
Quarter: 2011Q3

REPORT INFORMATION
  Report Type: 
  Country: None (occurrence: None)
  Receive Date: 20110906
  Receipt Date: 20110831
  Transmission Date: 20111222
  Serious: Yes (Hospitalization, Other)
  Sender: FDA-Public Use
  Company Number: PHHY2011JP68204

PATIENT
  Age: 77 Year
  Sex: Female

DRUGS (7)
  1. RABEPRAZOLE SODIUM [Concomitant]
     Route: 048
  2. MAGMITT [Concomitant]
  3. GASMOTIN [Concomitant]
     Route: 048
  4. FEMARA [Suspect]
     Indication: OSTEOPOROSIS
     Dosage: 5 MG, WEEKLY
     Dates: start: 20090219
  5. FEMARA [Suspect]
     Indication: BREAST CANCER
     Dosage: 2.5 MG, TID
     Route: 048
     Dates: start: 20080306, end: 20110704
  6. ALENDRONATE SODIUM [Suspect]
     Indication: OSTEOPOROSIS
     Dosage: 5 MG, DAILY
     Dates: start: 20090219
  7. ARICEPT [Concomitant]

REACTIONS (4)
  - IDIOPATHIC THROMBOCYTOPENIC PURPURA [None]
  - FAECES DISCOLOURED [None]
  - ANAEMIA [None]
  - OSTEOPOROSIS [None]
